FAERS Safety Report 25702269 (Version 1)
Quarter: 2025Q3

REPORT INFORMATION
  Report Type: Spontaneous
  Country: MX (occurrence: MX)
  Receive Date: 20250819
  Receipt Date: 20250819
  Transmission Date: 20251020
  Serious: Yes (Other)
  Sender: ELI LILLY AND COMPANY
  Company Number: MX-ELI_LILLY_AND_COMPANY-MX202508010104

PATIENT
  Sex: Female

DRUGS (2)
  1. HUMALOG MIX75/25 [Suspect]
     Active Substance: INSULIN LISPRO
     Indication: Product used for unknown indication
     Dosage: UNK UNK, UNKNOWN
     Route: 065
     Dates: start: 2015
  2. HUMALOG MIX75/25 [Suspect]
     Active Substance: INSULIN LISPRO
     Dosage: 5 U, EACH EVENING
     Route: 065
     Dates: start: 2015

REACTIONS (6)
  - Fall [Unknown]
  - Fractured coccyx [Unknown]
  - Diarrhoea [Unknown]
  - Gait inability [Unknown]
  - Gastrointestinal disorder [Unknown]
  - Wrong technique in product usage process [Unknown]

NARRATIVE: CASE EVENT DATE: 20200101
